FAERS Safety Report 10057092 (Version 1)
Quarter: 2014Q2

REPORT INFORMATION
  Report Type: Spontaneous
  Country: IT (occurrence: IT)
  Receive Date: 20140403
  Receipt Date: 20140403
  Transmission Date: 20141212
  Serious: Yes (Other)
  Sender: FDA-Public Use
  Company Number: PHHY2014IT037965

PATIENT
  Sex: Female

DRUGS (2)
  1. CARBOPLATIN [Suspect]
     Indication: OVARIAN CANCER
     Dosage: 700 MG, UNK
     Dates: start: 20130712, end: 20140213
  2. PACLITAXEL MYLAN [Concomitant]
     Indication: OVARIAN CANCER
     Dosage: 350 MG, UNK
     Route: 042
     Dates: start: 20130712, end: 20140317

REACTIONS (3)
  - Agitation [Recovered/Resolved]
  - Dyspnoea [Recovered/Resolved]
  - Throat tightness [Recovered/Resolved]
